FAERS Safety Report 26038317 (Version 4)
Quarter: 2025Q4

REPORT INFORMATION
  Report Type: Report from Study
  Country: US (occurrence: US)
  Receive Date: 20251113
  Receipt Date: 20251230
  Transmission Date: 20260118
  Serious: No
  Sender: SANDOZ
  Company Number: US-SANDOZ-SDZ2025US084076

PATIENT
  Sex: Male

DRUGS (1)
  1. OMNITROPE [Suspect]
     Active Substance: SOMATROPIN
     Indication: Hypopituitarism
     Dosage: 2.2 MG, QD

REACTIONS (4)
  - Product dose omission issue [Unknown]
  - Circumstance or information capable of leading to device use error [Unknown]
  - Device defective [Unknown]
  - Device leakage [Unknown]
